FAERS Safety Report 8218868-X (Version None)
Quarter: 2012Q1

REPORT INFORMATION
  Report Type: 
  Country: None (occurrence: None)
  Receive Date: 20120319
  Receipt Date: 20120316
  Transmission Date: 20120608
  Serious: Yes (Death)
  Sender: FDA-Public Use
  Company Number: PHHY2012CA020537

PATIENT
  Sex: Male

DRUGS (10)
  1. METHOTREXATE [Concomitant]
  2. ZOLEDRONOC ACID [Suspect]
     Dosage: UNK UKN, UNK
     Dates: start: 20110702
  3. ANSAID [Concomitant]
  4. ANAFRANIL [Concomitant]
  5. CARBIDOPA + LEVODOPA [Concomitant]
  6. FOLIC ACID [Concomitant]
  7. ABILIFY [Concomitant]
  8. MYOCHRYSINE [Concomitant]
  9. LITHIUM CARBONATE [Concomitant]
  10. METHIMAZOLE [Concomitant]

REACTIONS (1)
  - DEATH [None]
